FAERS Safety Report 8208645-8 (Version None)
Quarter: 2012Q1

REPORT INFORMATION
  Report Type: 
  Country: None (occurrence: None)
  Receive Date: 20120314
  Receipt Date: 20120305
  Transmission Date: 20120608
  Serious: Yes (Hospitalization)
  Sender: FDA-Public Use
  Company Number: US-ASTRAZENECA-2012SE12726

PATIENT
  Age: 50 Year
  Sex: Female

DRUGS (3)
  1. EXCEDRINE [Suspect]
     Route: 065
  2. ZOMIG [Suspect]
     Route: 048
  3. IMITREX [Concomitant]

REACTIONS (3)
  - ANEURYSM [None]
  - MIGRAINE [None]
  - DRUG DOSE OMISSION [None]
